FAERS Safety Report 6256085-3 (Version None)
Quarter: 2009Q2

REPORT INFORMATION
  Report Type: 
  Country: None (occurrence: None)
  Receive Date: 20090630
  Receipt Date: 20090630
  Transmission Date: 20091009
  Serious: Yes (Life-Threatening, Hospitalization)
  Sender: FDA-Public Use
  Company Number: None

PATIENT
  Age: 8 Year
  Sex: Male

DRUGS (2)
  1. ABILIFY [Suspect]
     Dosage: ONE 5 MG DOSE
  2. CLONIDINE [Concomitant]

REACTIONS (9)
  - ABASIA [None]
  - CEREBROVASCULAR ACCIDENT [None]
  - CRYING [None]
  - DEPRESSION [None]
  - DRUG HYPERSENSITIVITY [None]
  - GRAND MAL CONVULSION [None]
  - NECK PAIN [None]
  - ORAL DISORDER [None]
  - UNRESPONSIVE TO STIMULI [None]
